FAERS Safety Report 21742940 (Version 10)
Quarter: 2023Q1

REPORT INFORMATION
  Report Type: Spontaneous
  Country: US (occurrence: US)
  Receive Date: 20221217
  Receipt Date: 20230222
  Transmission Date: 20230417
  Serious: Yes (Hospitalization, Other)
  Sender: FDA-Public Use
  Company Number: US-UNITED THERAPEUTICS-UNT-2022-029235

PATIENT
  Sex: Female

DRUGS (5)
  1. REMODULIN [Suspect]
     Active Substance: TREPROSTINIL
     Indication: Pulmonary arterial hypertension
     Dosage: UNK, CONTINUING
     Route: 041
     Dates: start: 20221122
  2. REMODULIN [Suspect]
     Active Substance: TREPROSTINIL
     Dosage: 0.012 ?G/KG, CONTINUING
     Route: 041
     Dates: start: 202211
  3. REMODULIN [Suspect]
     Active Substance: TREPROSTINIL
     Dosage: 0.014 ?G/KG, CONTINUING
     Route: 041
     Dates: start: 2022
  4. REMODULIN [Suspect]
     Active Substance: TREPROSTINIL
     Dosage: 0.016 ?G/KG, CONTINUING
     Route: 041
     Dates: start: 2022
  5. REMODULIN [Suspect]
     Active Substance: TREPROSTINIL
     Dosage: 0.018 ?G/KG, CONTINUING
     Route: 041

REACTIONS (24)
  - Vascular device infection [Recovered/Resolved]
  - Nausea [Not Recovered/Not Resolved]
  - Vomiting [Unknown]
  - Retching [Not Recovered/Not Resolved]
  - Somnolence [Unknown]
  - Arthralgia [Unknown]
  - Dysphagia [Unknown]
  - Lethargy [Recovered/Resolved]
  - Pyrexia [Unknown]
  - Flank pain [Unknown]
  - Urinary tract infection [Unknown]
  - Injection site discharge [Not Recovered/Not Resolved]
  - Blood pressure systolic increased [Unknown]
  - Abdominal pain [Recovering/Resolving]
  - Faeces soft [Unknown]
  - Purulent discharge [Recovered/Resolved]
  - Injection site erythema [Not Recovered/Not Resolved]
  - Dermatitis contact [Unknown]
  - Injection site warmth [Not Recovered/Not Resolved]
  - Abdominal discomfort [Unknown]
  - Erythema [Unknown]
  - Therapy non-responder [Unknown]
  - Respiration abnormal [Unknown]
  - Chronic obstructive pulmonary disease [Unknown]

NARRATIVE: CASE EVENT DATE: 20220101
